FAERS Safety Report 8517099 (Version 3)
Quarter: 2013Q4

REPORT INFORMATION
  Report Type: Spontaneous
  Country: US (occurrence: US)
  Receive Date: 20120417
  Receipt Date: 20131129
  Transmission Date: 20140711
  Serious: Yes (Other)
  Sender: FDA-Public Use
  Company Number: US-ASTRAZENECA-2011SE32120

PATIENT
  Age: 50 Year
  Sex: Female

DRUGS (6)
  1. NEXIUM [Suspect]
     Route: 048
  2. SOMA [Concomitant]
     Indication: MUSCLE SPASMS
     Route: 048
     Dates: start: 2008
  3. ALEVE [Concomitant]
     Indication: JOINT INJURY
     Route: 048
  4. ALLERGY MEDICINE [Concomitant]
     Indication: HYPERSENSITIVITY
     Dosage: AS REQUIRED
     Route: 048
  5. SUPPLEMENTS [Concomitant]
     Route: 048
  6. CALCIUM SUPPLEMENT [Concomitant]

REACTIONS (10)
  - Ligament rupture [Unknown]
  - Fall [Unknown]
  - Migraine [Unknown]
  - Pain [Unknown]
  - Gastrooesophageal reflux disease [Unknown]
  - Discomfort [Unknown]
  - Abdominal discomfort [Unknown]
  - Malaise [Unknown]
  - Off label use [Unknown]
  - Drug dose omission [Unknown]
